FAERS Safety Report 4386855-8 (Version None)
Quarter: 2004Q2

REPORT INFORMATION
  Report Type: 
  Country: None (occurrence: None)
  Receive Date: 20040629
  Receipt Date: 20040618
  Transmission Date: 20050107
  Serious: Yes (Other)
  Sender: FDA-Public Use
  Company Number: M2004-0732

PATIENT
  Age: 62 Year
  Sex: Male
  Weight: 92.9874 kg

DRUGS (8)
  1. METFORMIN 850MG TABLETS, SANDOZ INC. [Suspect]
     Indication: DIABETES MELLITUS
     Dosage: 850 MG PO BID
     Route: 048
     Dates: start: 20040424, end: 20040526
  2. MULTI-VITAMIN [Concomitant]
  3. VITAMIN E [Concomitant]
  4. LISINOPRIL [Concomitant]
  5. HYDROCHLOROTHIAZIDE [Concomitant]
  6. ALPRAZOLAM [Concomitant]
  7. LEVOTHYROXINE SODIUM [Concomitant]
  8. ZETIA [Concomitant]

REACTIONS (6)
  - BLOOD GLUCOSE INCREASED [None]
  - FEAR [None]
  - PANIC ATTACK [None]
  - PSYCHIATRIC SYMPTOM [None]
  - SELF-MEDICATION [None]
  - SUICIDAL IDEATION [None]
